FAERS Safety Report 6632744-5 (Version None)
Quarter: 2010Q1

REPORT INFORMATION
  Report Type: 
  Country: None (occurrence: None)
  Receive Date: 20100312
  Receipt Date: 20100309
  Transmission Date: 20100710
  Serious: Yes (Other)
  Sender: FDA-Public Use
  Company Number: US-ELI_LILLY_AND_COMPANY-US201003002859

PATIENT
  Sex: Male

DRUGS (7)
  1. HUMALOG [Suspect]
     Indication: DIABETES MELLITUS
     Dosage: UNK, 2/D
     Dates: start: 20000101
  2. HUMULIN N [Suspect]
     Dosage: 65 U, EACH MORNING
     Dates: start: 20000101
  3. HUMULIN N [Suspect]
     Dosage: 45 U, EACH EVENING
     Dates: start: 20000101
  4. COREG [Concomitant]
  5. ISOSORBIDE [Concomitant]
  6. PHOSLO [Concomitant]
  7. QUELICIN [Concomitant]

REACTIONS (4)
  - CATARACT [None]
  - CORONARY ARTERY BYPASS [None]
  - VISION BLURRED [None]
  - VISUAL ACUITY REDUCED [None]
